FAERS Safety Report 26072224 (Version 1)
Quarter: 2025Q4

REPORT INFORMATION
  Report Type: Spontaneous
  Country: US (occurrence: US)
  Receive Date: 20251120
  Receipt Date: 20251120
  Transmission Date: 20260118
  Serious: No
  Sender: PFIZER
  Company Number: US-PFIZER INC-202500224793

PATIENT
  Age: 85 Year
  Sex: Female

DRUGS (2)
  1. DOBUTAMINE HYDROCHLORIDE [Suspect]
     Active Substance: DOBUTAMINE HYDROCHLORIDE
     Indication: Stress echocardiogram
     Dosage: UNK
     Dates: start: 20181002
  2. DEFINITY [Concomitant]
     Active Substance: PERFLUTREN
     Dosage: UNK
     Dates: start: 20181002, end: 20181002

REACTIONS (2)
  - Blood pressure increased [Recovered/Resolved]
  - Back pain [Recovered/Resolved]

NARRATIVE: CASE EVENT DATE: 20181002
